FAERS Safety Report 7729971-2 (Version None)
Quarter: 2011Q3

REPORT INFORMATION
  Report Type: 
  Country: None (occurrence: None)
  Receive Date: 20110906
  Receipt Date: 20110829
  Transmission Date: 20111222
  Serious: Yes (Other)
  Sender: FDA-Public Use
  Company Number: SE-BAYER-2011-041331

PATIENT
  Age: 43 Year
  Sex: Female

DRUGS (3)
  1. MIRENA [Suspect]
     Indication: PRODUCT USED FOR UNKNOWN INDICATION
     Dosage: 20 ?G/D, CONT
     Route: 015
     Dates: start: 20060101, end: 20110513
  2. MIRENA [Suspect]
     Dosage: 20 ?G/D, CONT
     Route: 015
     Dates: start: 19970101
  3. MIRENA [Suspect]
     Dosage: 20 ?G/D, CONT
     Route: 015

REACTIONS (2)
  - COMPLICATION OF DEVICE REMOVAL [None]
  - CERVICAL DYSPLASIA [None]
